FAERS Safety Report 7621005-3 (Version None)
Quarter: 2011Q3

REPORT INFORMATION
  Report Type: 
  Country: None (occurrence: None)
  Receive Date: 20110719
  Receipt Date: 20110323
  Transmission Date: 20111222
  Serious: No
  Sender: FDA-Public Use
  Company Number: US-KINGPHARMUSA00001-K201100332

PATIENT
  Age: 52 Year
  Sex: Female
  Weight: 131.52 kg

DRUGS (3)
  1. SIMVASTATIN [Concomitant]
     Indication: BLOOD CHOLESTEROL INCREASED
     Dosage: UNK
  2. LEVOXYL [Suspect]
     Indication: HYPOTHYROIDISM
     Dosage: 25 MCG, QD
     Route: 048
     Dates: start: 20110201, end: 20110322
  3. LEVOXYL [Suspect]
     Dosage: 50 MCG, QD
     Route: 048
     Dates: start: 20110323

REACTIONS (2)
  - HEADACHE [None]
  - DRUG INEFFECTIVE [None]
